FAERS Safety Report 9004459 (Version 1)
Quarter: 2012Q4

REPORT INFORMATION
  Report Type: Spontaneous
  Country: DK (occurrence: None)
  Receive Date: 20121227
  Receipt Date: 20121227
  Transmission Date: 20130627
  Serious: Yes (Other)
  Sender: FDA-Public Use
  Company Number: 2012MA014254

PATIENT
  Age: 53 Year
  Sex: Male

DRUGS (8)
  1. GABAPENTIN [Suspect]
     Indication: EPILEPSY
     Dosage: 2+1+1+1 Daily
  2. VALPROIC ACID [Suspect]
     Indication: EPILEPSY
  3. OXCARBAZEPINE (OXCARBAZEPINE) TABLET, 300MG [Suspect]
     Indication: EPILEPSY
  4. LAMOTRIGINE (LAMOTRIGINE) [Suspect]
     Indication: EPILEPSY
     Dates: start: 20060829
  5. DELEPSINE [Suspect]
     Indication: EPILEPSY
     Dates: start: 200302
  6. SIMVASTATIN [Concomitant]
  7. ATACAND [Concomitant]
  8. HJERTEMAGNYL [Concomitant]

REACTIONS (7)
  - Memory impairment [None]
  - Petit mal epilepsy [None]
  - Erectile dysfunction [None]
  - Fatigue [None]
  - Sleep apnoea syndrome [None]
  - Convulsion [None]
  - Cerebral cyst [None]
